FAERS Safety Report 5126371-9 (Version None)
Quarter: 2006Q4

REPORT INFORMATION
  Report Type: 
  Country: None (occurrence: None)
  Receive Date: 20061010
  Receipt Date: 20060926
  Transmission Date: 20070319
  Serious: Yes (Other)
  Sender: FDA-Public Use
  Company Number: 2006SP003048

PATIENT
  Age: 47 Year
  Sex: Male

DRUGS (2)
  1. PEG-INTRON [Suspect]
     Indication: HEPATITIS C
     Dosage: SC
     Route: 058
     Dates: start: 20060821
  2. REBETOL [Suspect]
     Indication: HEPATITIS C
     Dosage: PO
     Route: 048
     Dates: start: 20060821

REACTIONS (20)
  - ABNORMAL BEHAVIOUR [None]
  - AGGRESSION [None]
  - ANGER [None]
  - DEHYDRATION [None]
  - DRUG ABUSER [None]
  - EXPOSURE TO TOXIC AGENT [None]
  - EYE SWELLING [None]
  - FAMILY STRESS [None]
  - FEELING ABNORMAL [None]
  - HALLUCINATION [None]
  - HYPERSOMNIA [None]
  - HYPOTENSION [None]
  - INFECTION [None]
  - INFLUENZA [None]
  - ORAL INTAKE REDUCED [None]
  - PAROSMIA [None]
  - PURULENCE [None]
  - PYREXIA [None]
  - VICTIM OF CRIME [None]
  - VOMITING [None]
